FAERS Safety Report 9892289 (Version 1)
Quarter: 2014Q1

REPORT INFORMATION
  Report Type: Spontaneous
  Country: US (occurrence: US)
  Receive Date: 20140212
  Receipt Date: 20140212
  Transmission Date: 20141002
  Serious: Yes (Life-Threatening)
  Sender: FDA-Public Use
  Company Number: CHPA2014US002501

PATIENT
  Sex: Female

DRUGS (4)
  1. BUCKLEY^S COUGH MIXTURE [Suspect]
     Indication: HYPERSENSITIVITY
     Route: 048
  2. BUCKLEY^S COUGH MIXTURE [Suspect]
     Indication: BRONCHIAL IRRITATION
  3. BUCKLEY^S COUGH MIXTURE [Suspect]
     Indication: OFF LABEL USE
  4. BUCKLEY^S COUGH MIXTURE [Suspect]
     Indication: COUGH

REACTIONS (2)
  - Feeling abnormal [Unknown]
  - Therapeutic response unexpected [Unknown]
